FAERS Safety Report 19598324 (Version 1)
Quarter: 2021Q3

REPORT INFORMATION
  Report Type: Report from Study
  Country: DE (occurrence: DE)
  Receive Date: 20210722
  Receipt Date: 20210722
  Transmission Date: 20211014
  Serious: No
  Sender: FDA-Public Use
  Company Number: NVSC2020DE198467

PATIENT
  Sex: Female
  Weight: 65 kg

DRUGS (1)
  1. MAYZENT [Suspect]
     Active Substance: SIPONIMOD
     Indication: SECONDARY PROGRESSIVE MULTIPLE SCLEROSIS
     Dosage: 2 MG, QD
     Route: 048
     Dates: start: 20200630

REACTIONS (5)
  - Blood cholesterol increased [Recovering/Resolving]
  - Gastritis [Recovered/Resolved]
  - Meniscus injury [Recovering/Resolving]
  - Hand deformity [Recovering/Resolving]
  - Abdominal neoplasm [Recovered/Resolved]

NARRATIVE: CASE EVENT DATE: 20200707
